FAERS Safety Report 9216047 (Version 1)
Quarter: 2013Q2

REPORT INFORMATION
  Report Type: Spontaneous
  Country: IT (occurrence: None)
  Receive Date: 20130402
  Receipt Date: 20130402
  Transmission Date: 20140414
  Serious: Yes (Hospitalization)
  Sender: FDA-Public Use
  Company Number: GER/ITL/13/0028745

PATIENT
  Age: 71 Year
  Sex: Female

DRUGS (1)
  1. LEVOFLOXACIN (LEVOFLOXACIN HEMIHYDRATE) [Suspect]
     Indication: PHLEBITIS
     Route: 048
     Dates: start: 20130305, end: 20130312

REACTIONS (4)
  - Tendonitis [None]
  - Asthenia [None]
  - Haematoma [None]
  - Tendon pain [None]
